FAERS Safety Report 5177063-1 (Version None)
Quarter: 2006Q4

REPORT INFORMATION
  Report Type: 
  Country: None (occurrence: None)
  Receive Date: 20061218
  Receipt Date: 20061215
  Transmission Date: 20070319
  Serious: Yes (Hospitalization)
  Sender: FDA-Public Use
  Company Number: FR-GLAXOSMITHKLINE-B0450761A

PATIENT
  Age: 81 Year
  Sex: Female

DRUGS (13)
  1. CLAMOXYL [Suspect]
     Dosage: 12G PER DAY
     Route: 048
     Dates: start: 20061117
  2. PREVISCAN 20 [Suspect]
     Dosage: 20MG PER DAY
     Route: 048
     Dates: start: 20061119, end: 20061124
  3. PRAVASTATIN [Concomitant]
     Route: 065
  4. LASIX [Concomitant]
     Route: 065
  5. CORDARONE [Concomitant]
     Route: 065
  6. ACETAMINOPHEN W/ PROPOXYPHENE HCL [Concomitant]
     Route: 065
  7. HEPARIN [Concomitant]
     Route: 065
     Dates: end: 20061119
  8. PREVISCAN [Concomitant]
     Route: 065
     Dates: start: 20030101
  9. EVISTA [Concomitant]
     Route: 065
  10. VANCOMYCIN [Concomitant]
     Route: 065
  11. GENTAMICIN [Concomitant]
     Route: 065
  12. CIPROFLOXACIN [Concomitant]
     Route: 065
  13. VASTAREL [Concomitant]
     Route: 065

REACTIONS (5)
  - BLOOD GLUCOSE FLUCTUATION [None]
  - DIABETES MELLITUS NON-INSULIN-DEPENDENT [None]
  - DRUG INTERACTION [None]
  - INTERNATIONAL NORMALISED RATIO INCREASED [None]
  - OVERDOSE [None]
